FAERS Safety Report 5328332-3 (Version None)
Quarter: 2007Q2

REPORT INFORMATION
  Report Type: 
  Country: None (occurrence: None)
  Receive Date: 20070518
  Receipt Date: 20070507
  Transmission Date: 20071010
  Serious: Yes (Other)
  Sender: FDA-Public Use
  Company Number: US-JNJFOC-20070501866

PATIENT
  Sex: Male
  Weight: 56 kg

DRUGS (12)
  1. ETRAVIRINE [Suspect]
     Indication: HIV INFECTION
     Route: 048
  2. EPZICOM [Suspect]
     Indication: HIV INFECTION
     Route: 048
  3. PREZISTA [Suspect]
     Indication: HIV INFECTION
     Route: 048
  4. NORVIR [Suspect]
     Indication: HIV INFECTION
     Route: 048
  5. MK-0518 [Suspect]
     Indication: HIV INFECTION
     Route: 048
  6. COMBIVIR [Concomitant]
     Indication: HIV INFECTION
     Route: 048
  7. KALETRA [Concomitant]
     Indication: HIV INFECTION
     Route: 048
  8. MEPRON [Concomitant]
     Dosage: SOLUTION = 750MG/5ML
     Route: 065
  9. ACYCLOVIR [Concomitant]
     Route: 065
  10. NYSTATIN [Concomitant]
     Dosage: SOLUTION = 100,000 UNITS/5ML
     Route: 065
  11. PREDNISONE TAB [Concomitant]
     Route: 065
  12. PEPCID [Concomitant]
     Dosage: TAKEN AS NEEDED
     Route: 065

REACTIONS (4)
  - FATIGUE [None]
  - HYPERSENSITIVITY [None]
  - NAUSEA [None]
  - VOMITING [None]
